FAERS Safety Report 5704727-0 (Version None)
Quarter: 2008Q2

REPORT INFORMATION
  Report Type: 
  Country: None (occurrence: None)
  Receive Date: 20080410
  Receipt Date: 20080328
  Transmission Date: 20081010
  Serious: Yes (Hospitalization, Other)
  Sender: FDA-Public Use
  Company Number: 197760

PATIENT
  Age: 63 Year
  Sex: Female

DRUGS (4)
  1. AVONEX [Suspect]
     Indication: MULTIPLE SCLEROSIS
     Dosage: 30 UG;QW;IM
     Route: 030
     Dates: start: 20010120, end: 20080120
  2. PREDNISONE [Concomitant]
  3. STEROIDS [Concomitant]
  4. PROVIGIL [Concomitant]

REACTIONS (2)
  - BLINDNESS UNILATERAL [None]
  - UVEITIS [None]
